FAERS Safety Report 4778201-2 (Version None)
Quarter: 2005Q3

REPORT INFORMATION
  Report Type: 
  Country: None (occurrence: None)
  Receive Date: 20050926
  Receipt Date: 20020220
  Transmission Date: 20060218
  Serious: Yes (Other)
  Sender: FDA-Public Use
  Company Number: US-BRISTOL-MYERS SQUIBB COMPANY-11736477

PATIENT
  Age: 27 Year
  Sex: Female

DRUGS (6)
  1. STADOL [Suspect]
     Indication: MIGRAINE
     Route: 045
     Dates: start: 19950101, end: 20000701
  2. STADOL [Suspect]
     Indication: MIGRAINE
     Route: 030
     Dates: start: 19980728
  3. HYDROCODONE BITARTRATE + ACETAMINOPHEN [Concomitant]
  4. PROMETHAZINE [Concomitant]
  5. ALPRAZOLAM [Concomitant]
  6. AMITRIPTYLINE HCL [Concomitant]

REACTIONS (1)
  - DEPENDENCE [None]
